FAERS Safety Report 6029728-7 (Version None)
Quarter: 2009Q1

REPORT INFORMATION
  Report Type: 
  Country: None (occurrence: None)
  Receive Date: 20090107
  Receipt Date: 20081223
  Transmission Date: 20090719
  Serious: Yes (Hospitalization)
  Sender: FDA-Public Use
  Company Number: SK-BIOGENIDEC-2009BI000147

PATIENT
  Age: 20 Year
  Sex: Female

DRUGS (2)
  1. TYSABRI [Suspect]
     Indication: MULTIPLE SCLEROSIS
     Route: 042
     Dates: end: 20081001
  2. TYSABRI [Suspect]
     Route: 042
     Dates: start: 20081217

REACTIONS (3)
  - CENTRAL NERVOUS SYSTEM LESION [None]
  - PARESIS [None]
  - PYREXIA [None]
